FAERS Safety Report 19448053 (Version 1)
Quarter: 2021Q2

REPORT INFORMATION
  Report Type: Spontaneous
  Country: US (occurrence: US)
  Receive Date: 20210622
  Receipt Date: 20210622
  Transmission Date: 20210717
  Serious: Yes (Other)
  Sender: FDA-Public Use
  Company Number: None

PATIENT
  Age: 56 Year
  Sex: Female
  Weight: 72 kg

DRUGS (16)
  1. CALCIUM CARBONATE 500MG [Concomitant]
  2. FERROUS SULFATE 325 (65 FE)MG BID [Concomitant]
  3. MAGNESIUM OXIDE 400MG TID [Concomitant]
  4. PROGRAF [Concomitant]
     Active Substance: TACROLIMUS
  5. VITAMIN D3 10MCG [Concomitant]
  6. PREDNISONE 10MG [Concomitant]
     Active Substance: PREDNISONE
  7. WELLBUTRIN SR [Concomitant]
     Active Substance: BUPROPION HYDROCHLORIDE
  8. DIPHENHYDRAMINE 25?50MG [Concomitant]
     Dates: start: 20210621
  9. BACTRIM 400?80MG [Concomitant]
  10. VALCYTE 450MG [Concomitant]
  11. ASPIRIN 81MG [Concomitant]
     Active Substance: ASPIRIN
  12. CELLCEPT [Concomitant]
     Active Substance: MYCOPHENOLATE MOFETIL\MYCOPHENOLATE MOFETIL HYDROCHLORIDE
  13. EVEROLIMUS 1.5MG BID [Concomitant]
  14. ACETAMINOPHEN 325?650MG [Concomitant]
     Dates: start: 20210621
  15. LOSARTAN 12.5MG [Concomitant]
  16. GAMMAGARD LIQUID [Suspect]
     Active Substance: HUMAN IMMUNOGLOBULIN G
     Indication: RENAL TRANSPLANT
     Dosage: ?          OTHER FREQUENCY:MONTHLY;?
     Route: 042
     Dates: start: 20210621, end: 20210621

REACTIONS (6)
  - Nausea [None]
  - Nuchal rigidity [None]
  - Influenza like illness [None]
  - Vomiting [None]
  - Photosensitivity reaction [None]
  - Meningitis aseptic [None]

NARRATIVE: CASE EVENT DATE: 20210621
